FAERS Safety Report 25419996 (Version 4)
Quarter: 2025Q3

REPORT INFORMATION
  Report Type: Spontaneous
  Country: US (occurrence: US)
  Receive Date: 20250610
  Receipt Date: 20250905
  Transmission Date: 20251021
  Serious: Yes (Hospitalization, Other)
  Sender: SANOFI AVENTIS
  Company Number: US-SA-2025SA164103

PATIENT
  Sex: Female
  Weight: 75.95 kg

DRUGS (3)
  1. DUPIXENT [Suspect]
     Active Substance: DUPILUMAB
     Indication: Nasal polyps
     Dosage: 300 MG, QOW
     Route: 058
  2. DUPIXENT [Suspect]
     Active Substance: DUPILUMAB
     Indication: Nasal congestion
  3. CIMZIA [Suspect]
     Active Substance: CERTOLIZUMAB PEGOL

REACTIONS (7)
  - Cerebrovascular accident [Unknown]
  - Illness [Unknown]
  - Product storage error [Unknown]
  - Inflammation [Unknown]
  - Joint swelling [Unknown]
  - Blood pressure abnormal [Unknown]
  - Product use in unapproved indication [Unknown]
